FAERS Safety Report 8432249-5 (Version None)
Quarter: 2012Q2

REPORT INFORMATION
  Report Type: 
  Country: None (occurrence: None)
  Receive Date: 20120613
  Receipt Date: 20120608
  Transmission Date: 20120825
  Serious: Yes (Other)
  Sender: FDA-Public Use
  Company Number: US-PFIZER INC-2012061360

PATIENT
  Sex: Female
  Weight: 104 kg

DRUGS (13)
  1. COMBIVENT [Concomitant]
     Dosage: 2 PUFFS AS NEEDED
  2. CLONAZEPAM [Concomitant]
     Dosage: 1 MG, 2 AT BED TIME
  3. CHANTIX [Suspect]
     Dosage: 1 MG,  2X/DAY
     Route: 048
     Dates: start: 20120311, end: 20120315
  4. PROVIGIL [Concomitant]
     Dosage: 200 MG, 2 IN A.M, 1 AT NOON
  5. PREVACID [Concomitant]
     Dosage: 30 MG, 1X/DAY
  6. NEURONTIN [Concomitant]
     Dosage: 800 MG, 3X/DAY
  7. CHANTIX [Suspect]
     Dosage: 0.5 MG,  2X/DAY
     Route: 048
     Dates: start: 20120307, end: 20120310
  8. CHANTIX [Suspect]
     Dosage: UNK
     Route: 048
     Dates: start: 20120316, end: 20120101
  9. ALBUTEROL [Concomitant]
     Dosage: UNK, AS NEED
  10. ROBAXIN [Concomitant]
     Dosage: 750 MG, 3X/DAY
  11. CHANTIX [Suspect]
     Indication: SMOKING CESSATION THERAPY
     Dosage: 0.5 MG, 1X/DAY
     Route: 048
     Dates: start: 20120304, end: 20120306
  12. OXYCODONE [Concomitant]
     Dosage: 30 MG,1 EVERY 4-6 HOURS
  13. IBUPROFEN [Concomitant]
     Dosage: 800 MG, 3X/DAY

REACTIONS (8)
  - PAIN [None]
  - LOCAL SWELLING [None]
  - FRUSTRATION [None]
  - OEDEMA PERIPHERAL [None]
  - FEAR [None]
  - NERVOUSNESS [None]
  - SWELLING [None]
  - HEADACHE [None]
